FAERS Safety Report 18862067 (Version 2)
Quarter: 2021Q1

REPORT INFORMATION
  Report Type: Report from Study
  Country: None (occurrence: US)
  Receive Date: 20210209
  Receipt Date: 20210209
  Transmission Date: 20210420
  Serious: Yes (Other)
  Sender: FDA-Public Use
  Company Number: US-ABBVIE-20K-163-3610155-00

PATIENT
  Sex: Female
  Weight: 88.98 kg

DRUGS (2)
  1. HUMIRA [Suspect]
     Active Substance: ADALIMUMAB
     Route: 058
     Dates: start: 202010
  2. HUMIRA [Suspect]
     Active Substance: ADALIMUMAB
     Indication: RHEUMATOID ARTHRITIS
     Route: 058
     Dates: start: 2015, end: 202009

REACTIONS (8)
  - Medical device site rash [Not Recovered/Not Resolved]
  - Impaired healing [Unknown]
  - Skin induration [Recovering/Resolving]
  - Procedural pain [Recovered/Resolved]
  - Postoperative wound complication [Recovered/Resolved]
  - Post procedural complication [Unknown]
  - Arthralgia [Recovered/Resolved]
  - Pain [Not Recovered/Not Resolved]

NARRATIVE: CASE EVENT DATE: 2019
